FAERS Safety Report 6834390-7 (Version None)
Quarter: 2010Q3

REPORT INFORMATION
  Report Type: 
  Country: None (occurrence: None)
  Receive Date: 20100712
  Receipt Date: 20080603
  Transmission Date: 20110219
  Serious: No
  Sender: FDA-Public Use
  Company Number: US-PFIZER INC-2007026295

PATIENT
  Sex: Female
  Weight: 65.77 kg

DRUGS (3)
  1. CHANTIX [Suspect]
     Indication: SMOKING CESSATION THERAPY
     Dates: start: 20070301, end: 20070801
  2. TRILEPTAL [Concomitant]
     Indication: DEPRESSION
  3. NICOTINE [Concomitant]
     Indication: SMOKING CESSATION THERAPY

REACTIONS (8)
  - ABNORMAL DREAMS [None]
  - ANXIETY [None]
  - ASPIRATION [None]
  - DRUG WITHDRAWAL SYNDROME [None]
  - DYSGEUSIA [None]
  - HEADACHE [None]
  - HYPERHIDROSIS [None]
  - NAUSEA [None]
